FAERS Safety Report 5270556-8 (Version None)
Quarter: 2007Q1

REPORT INFORMATION
  Report Type: 
  Country: None (occurrence: None)
  Receive Date: 20070315
  Receipt Date: 20070302
  Transmission Date: 20070707
  Serious: Yes (Hospitalization)
  Sender: FDA-Public Use
  Company Number: 2000-08-0145

PATIENT
  Age: 33 Year
  Sex: Female
  Weight: 90.7194 kg

DRUGS (7)
  1. INTRON A [Suspect]
     Indication: HEPATITIS C
     Dosage: 3 MIU; TIW; SC
     Route: 058
     Dates: start: 20000112
  2. REBETOL [Suspect]
     Indication: HEPATITIS C
     Dosage: 1200 MG; QD; PO
     Route: 048
     Dates: start: 20000112
  3. AMARYL [Concomitant]
  4. DARVON [Concomitant]
  5. ULTRAM [Concomitant]
  6. ALLEGRA [Concomitant]
  7. ENTEX /00567601/ [Concomitant]

REACTIONS (3)
  - ABDOMINAL PAIN [None]
  - DEPRESSION [None]
  - SCHIZOPHRENIA [None]
